FAERS Safety Report 8924110 (Version 2)
Quarter: 2012Q4

REPORT INFORMATION
  Report Type: 
  Country: US (occurrence: US)
  Receive Date: 20121126
  Receipt Date: 20121205
  Transmission Date: 20130627
  Serious: Yes (Death)
  Sender: FDA-Public Use
  Company Number: US-GILEAD-2012-0065019

PATIENT
  Age: 40 Year
  Sex: Male

DRUGS (8)
  1. LETAIRIS [Suspect]
     Indication: PULMONARY ARTERIAL HYPERTENSION
     Dosage: 10 mg, QD
     Route: 048
     Dates: start: 20111214
  2. LETAIRIS [Suspect]
     Indication: PORTOPULMONARY HYPERTENSION
  3. LETAIRIS [Suspect]
     Indication: HEPATIC CIRRHOSIS
  4. NASONEX [Concomitant]
  5. SYMBICORT [Concomitant]
  6. PREVACID [Concomitant]
  7. SINGULAIR [Concomitant]
  8. FUROSEMIDE [Concomitant]

REACTIONS (1)
  - Death [Fatal]
